FAERS Safety Report 6419510-0 (Version None)
Quarter: 2009Q4

REPORT INFORMATION
  Report Type: 
  Country: None (occurrence: None)
  Receive Date: 20091029
  Receipt Date: 20091020
  Transmission Date: 20100525
  Serious: Yes (Other)
  Sender: FDA-Public Use
  Company Number: US-JNJFOC-20090901200

PATIENT
  Sex: Female
  Weight: 79.83 kg

DRUGS (7)
  1. RISPERDAL CONSTA [Suspect]
     Indication: SCHIZOPHRENIA
     Route: 030
  2. INVEGA [Concomitant]
     Indication: SCHIZOPHRENIA
     Route: 048
  3. GEODON [Concomitant]
     Route: 065
  4. ABILIFY [Concomitant]
     Route: 065
  5. KLONOPIN [Concomitant]
     Route: 065
  6. PROVERA [Concomitant]
     Indication: HORMONE LEVEL ABNORMAL
     Route: 065
  7. CLOMIPHENE CITRATE [Concomitant]
     Route: 065

REACTIONS (12)
  - AMENORRHOEA [None]
  - BLOOD PROLACTIN INCREASED [None]
  - BREAST DISCHARGE [None]
  - BREAST MASS [None]
  - DIZZINESS [None]
  - GALACTORRHOEA [None]
  - HEADACHE [None]
  - INAPPROPRIATE SCHEDULE OF DRUG ADMINISTRATION [None]
  - LYMPHADENOPATHY [None]
  - MENOPAUSE [None]
  - PALPITATIONS [None]
  - WEIGHT INCREASED [None]
